FAERS Safety Report 24393985 (Version 1)
Quarter: 2024Q4

REPORT INFORMATION
  Report Type: Spontaneous
  Country: IT (occurrence: IT)
  Receive Date: 20241003
  Receipt Date: 20241003
  Transmission Date: 20250115
  Serious: Yes (Death)
  Sender: ORGANON
  Company Number: IT-EVER-2024-Apo-314

PATIENT
  Age: 69 Year
  Sex: Female

DRUGS (3)
  1. CARBIDOPA\LEVODOPA [Suspect]
     Active Substance: CARBIDOPA\LEVODOPA
     Indication: Parkinson^s disease
     Dosage: 425 MILLIGRAM, QD
     Route: 048
     Dates: start: 2005
  2. APOMORPHINE [Suspect]
     Active Substance: APOMORPHINE
     Indication: Parkinson^s disease
     Dosage: DOSE WAS INCREASED FROM 1.5 MG/H TO 1.8 MG/H ON 16-SEP-2024
     Route: 058
     Dates: start: 20240702
  3. APOMORPHINE [Suspect]
     Active Substance: APOMORPHINE
     Dosage: 1.8 MG/H
     Route: 058
     Dates: start: 20240916

REACTIONS (1)
  - Sudden death [Fatal]

NARRATIVE: CASE EVENT DATE: 20240918
